FAERS Safety Report 6853912-3 (Version None)
Quarter: 2010Q3

REPORT INFORMATION
  Report Type: 
  Country: None (occurrence: None)
  Receive Date: 20100717
  Receipt Date: 20080103
  Transmission Date: 20110219
  Serious: No
  Sender: FDA-Public Use
  Company Number: US-PFIZER INC-2007108455

PATIENT
  Sex: Female

DRUGS (5)
  1. CHANTIX [Suspect]
     Indication: SMOKING CESSATION THERAPY
     Dates: start: 20060901, end: 20070101
  2. NEURONTIN [Suspect]
  3. TRAZODONE HYDROCHLORIDE [Concomitant]
  4. CLONAZEPAM [Concomitant]
  5. LYRICA [Concomitant]

REACTIONS (3)
  - DRUG INEFFECTIVE [None]
  - NIGHTMARE [None]
  - STRESS [None]
